FAERS Safety Report 8172412-4 (Version None)
Quarter: 2012Q1

REPORT INFORMATION
  Report Type: 
  Country: None (occurrence: None)
  Receive Date: 20120224
  Receipt Date: 20120224
  Transmission Date: 20120608
  Serious: Yes (Hospitalization)
  Sender: FDA-Public Use
  Company Number: None

PATIENT
  Age: 72 Year
  Sex: Male

DRUGS (1)
  1. LENALIDOMIDE [Suspect]
     Indication: MYELODYSPLASTIC SYNDROME
     Dosage: 50 MG DAILY ORAL
     Route: 048
     Dates: start: 20120120

REACTIONS (6)
  - DRUG DOSE OMISSION [None]
  - MYELODYSPLASTIC SYNDROME [None]
  - ANAEMIA [None]
  - BACK PAIN [None]
  - FEBRILE NEUTROPENIA [None]
  - HYPERTENSION [None]
